FAERS Safety Report 6556981-3 (Version None)
Quarter: 2010Q1

REPORT INFORMATION
  Report Type: 
  Country: None (occurrence: None)
  Receive Date: 20100126
  Receipt Date: 20100115
  Transmission Date: 20100710
  Serious: Yes (Hospitalization)
  Sender: FDA-Public Use
  Company Number: 20107992

PATIENT
  Sex: Male

DRUGS (1)
  1. LIORESAL [Suspect]
     Indication: MUSCLE SPASTICITY
     Dosage: 852 - 200 MCG, DAILY, INTRATHECAL
     Route: 037

REACTIONS (4)
  - CONVULSION [None]
  - DEVICE MALFUNCTION [None]
  - HYPOVENTILATION [None]
  - RESPIRATORY DISORDER [None]
